FAERS Safety Report 7496241-X (Version None)
Quarter: 2011Q2

REPORT INFORMATION
  Report Type: 
  Country: None (occurrence: None)
  Receive Date: 20110523
  Receipt Date: 20110517
  Transmission Date: 20111010
  Serious: Yes (Death)
  Sender: FDA-Public Use
  Company Number: PHHY2011US42537

PATIENT
  Sex: Female

DRUGS (2)
  1. AVASTIN [Concomitant]
  2. ZOMETA [Suspect]
     Dosage: 4 MG, UNK

REACTIONS (1)
  - DEATH [None]
